FAERS Safety Report 8503708-1 (Version None)
Quarter: 2012Q3

REPORT INFORMATION
  Report Type: 
  Country: None (occurrence: None)
  Receive Date: 20120711
  Receipt Date: 20120706
  Transmission Date: 20120928
  Serious: Yes (Hospitalization, Other)
  Sender: FDA-Public Use
  Company Number: PHHY2012CO053472

PATIENT
  Sex: Female
  Weight: 37 kg

DRUGS (1)
  1. EXELON [Suspect]
     Indication: DEMENTIA ALZHEIMER'S TYPE
     Dosage: 4.6 MG, UNK
     Route: 062
     Dates: start: 20120401, end: 20120401

REACTIONS (7)
  - PALPITATIONS [None]
  - SKIN IRRITATION [None]
  - CEREBROVASCULAR ACCIDENT [None]
  - ANGIOPATHY [None]
  - TACHYCARDIA [None]
  - PAROXYSMAL ARRHYTHMIA [None]
  - DYSPNOEA [None]
